FAERS Safety Report 5455138-7 (Version None)
Quarter: 2007Q3

REPORT INFORMATION
  Report Type: 
  Country: None (occurrence: None)
  Receive Date: 20070914
  Receipt Date: 20070831
  Transmission Date: 20080115
  Serious: Yes (Disabling, Other)
  Sender: FDA-Public Use
  Company Number: CIP07001659

PATIENT
  Age: 53 Year
  Sex: Female

DRUGS (8)
  1. DIDRONEL [Suspect]
     Indication: OSTEOPOROSIS
     Dosage: ORAL
     Route: 048
     Dates: start: 20010101
  2. PREDONINE /00016201/(PREDNISOLONE) [Suspect]
     Indication: COLLAGEN DISORDER
     Dosage: ORAL
     Route: 048
  3. VIT K CAP [Concomitant]
  4. ALFAROL (ALFACALCIDOL) [Concomitant]
  5. SLOW-K [Concomitant]
  6. EVOXAC [Concomitant]
  7. OPALMON (LIMAPROST) [Concomitant]
  8. PRORENAL (LIMAPROST) [Concomitant]

REACTIONS (6)
  - JAW DISORDER [None]
  - ORAL INTAKE REDUCED [None]
  - OSTEOMYELITIS [None]
  - OSTEONECROSIS [None]
  - OSTEOSCLEROSIS [None]
  - PRIMARY SEQUESTRUM [None]
